FAERS Safety Report 14634305 (Version 1)
Quarter: 2018Q1

REPORT INFORMATION
  Report Type: Spontaneous
  Country: FR (occurrence: FR)
  Receive Date: 20180314
  Receipt Date: 20180314
  Transmission Date: 20180509
  Serious: Yes (Other)
  Sender: FDA-Public Use
  Company Number: FR-CIPLA LTD.-2018FR10740

PATIENT

DRUGS (2)
  1. EFFEXOR [Suspect]
     Active Substance: VENLAFAXINE HYDROCHLORIDE
     Indication: ANXIETY
     Dosage: UNK, NON RENSEIGNEE
     Route: 048
  2. LAMOTRIGINE. [Suspect]
     Active Substance: LAMOTRIGINE
     Indication: EPILEPSY
     Dosage: UNK, NON RENSEIGNEE
     Route: 048

REACTIONS (1)
  - Raynaud^s phenomenon [Not Recovered/Not Resolved]
